FAERS Safety Report 16491187 (Version 1)
Quarter: 2019Q2

REPORT INFORMATION
  Report Type: Spontaneous
  Country: US (occurrence: US)
  Receive Date: 20190518
  Receipt Date: 20190518
  Transmission Date: 20190711
  Serious: Yes (Hospitalization)
  Sender: FDA-Public Use
  Company Number: None

PATIENT
  Age: 68 Year
  Sex: Female
  Weight: 61.4 kg

DRUGS (2)
  1. CARBOPLATIN. [Suspect]
     Active Substance: CARBOPLATIN
     Dates: end: 20170720
  2. TAXOL [Suspect]
     Active Substance: PACLITAXEL
     Dates: end: 20170720

REACTIONS (10)
  - Diarrhoea [None]
  - Nausea [None]
  - Immunodeficiency [None]
  - Anaemia [None]
  - Enterocolitis [None]
  - Campylobacter gastroenteritis [None]
  - Malaise [None]
  - Pyrexia [None]
  - Vomiting [None]
  - Hypokalaemia [None]

NARRATIVE: CASE EVENT DATE: 20170727
